FAERS Safety Report 12521053 (Version 1)
Quarter: 2016Q2

REPORT INFORMATION
  Report Type: Spontaneous
  Country: US (occurrence: None)
  Receive Date: 20160630
  Receipt Date: 20160630
  Transmission Date: 20160815
  Serious: Yes (Hospitalization)
  Sender: FDA-Public Use
  Company Number: None

PATIENT
  Age: 74 Year
  Sex: Male
  Weight: 84.5 kg

DRUGS (1)
  1. DOXYCYCLINE. [Suspect]
     Active Substance: DOXYCYCLINE
     Indication: ROSACEA
     Route: 048
     Dates: start: 20160526, end: 20160610

REACTIONS (4)
  - Dysstasia [None]
  - Diplopia [None]
  - Intracranial pressure increased [None]
  - Vision blurred [None]

NARRATIVE: CASE EVENT DATE: 20160609
